FAERS Safety Report 11666033 (Version 1)
Quarter: 2015Q4

REPORT INFORMATION
  Report Type: Spontaneous
  Country: US (occurrence: US)
  Receive Date: 20151027
  Receipt Date: 20151027
  Transmission Date: 20160304
  Serious: No
  Sender: FDA-Public Use
  Company Number: US-ELI_LILLY_AND_COMPANY-US201001005134

PATIENT
  Sex: Female

DRUGS (4)
  1. BUSPIRONE HYDROCHLORIDE. [Concomitant]
     Active Substance: BUSPIRONE HYDROCHLORIDE
     Dosage: 30 MG, 2/D
  2. FORTEO [Suspect]
     Active Substance: TERIPARATIDE
     Indication: OSTEOPOROSIS
     Dosage: 20 UG, 3/W
     Dates: start: 200907
  3. FORTEO [Suspect]
     Active Substance: TERIPARATIDE
     Dosage: 20 UG, DAILY (1/D)
  4. VITAMINS [Concomitant]
     Active Substance: VITAMINS

REACTIONS (11)
  - Arthropathy [Unknown]
  - Pain [Unknown]
  - Insomnia [Unknown]
  - Arthralgia [Unknown]
  - Inappropriate schedule of drug administration [Unknown]
  - Gait disturbance [Unknown]
  - Pain in extremity [Unknown]
  - Burning sensation [Unknown]
  - Generalised erythema [Unknown]
  - Nail disorder [Unknown]
  - Multiple fractures [Unknown]

NARRATIVE: CASE EVENT DATE: 2009
